FAERS Safety Report 20483261 (Version 1)
Quarter: 2022Q1

REPORT INFORMATION
  Report Type: Spontaneous
  Country: US (occurrence: US)
  Receive Date: 20220217
  Receipt Date: 20220217
  Transmission Date: 20220423
  Serious: No
  Sender: FDA-Public Use
  Company Number: US-AUROBINDO-AUR-APL-2021-010263

PATIENT
  Age: 40 Year
  Sex: Female
  Weight: 101.6 kg

DRUGS (7)
  1. ZIPRASIDONE HYDROCHLORIDE [Suspect]
     Active Substance: ZIPRASIDONE HYDROCHLORIDE
     Indication: Depression
     Dosage: 1 DOSAGE FORM, ONCE A DAY
     Route: 065
  2. ZIPRASIDONE HYDROCHLORIDE [Suspect]
     Active Substance: ZIPRASIDONE HYDROCHLORIDE
     Indication: Schizophrenia
  3. METFORMIN [Concomitant]
     Active Substance: METFORMIN HYDROCHLORIDE
     Indication: Product used for unknown indication
     Dosage: UNK
     Route: 065
  4. AMLODIPINE [Concomitant]
     Active Substance: AMLODIPINE BESYLATE
     Indication: Product used for unknown indication
     Dosage: UNK
     Route: 065
  5. LISINOPRIL [Concomitant]
     Active Substance: LISINOPRIL
     Indication: Product used for unknown indication
     Dosage: UNK
     Route: 065
  6. TRINTELLIX [Concomitant]
     Active Substance: VORTIOXETINE HYDROBROMIDE
     Indication: Product used for unknown indication
     Dosage: UNK
     Route: 065
  7. BUSPIRONE [Concomitant]
     Active Substance: BUSPIRONE HYDROCHLORIDE
     Indication: Product used for unknown indication
     Dosage: UNK
     Route: 065

REACTIONS (1)
  - Insomnia [Recovered/Resolved]
